FAERS Safety Report 9596560 (Version 2)
Quarter: 2013Q4

REPORT INFORMATION
  Report Type: Spontaneous
  Country: US (occurrence: US)
  Receive Date: 20131004
  Receipt Date: 20131021
  Transmission Date: 20140711
  Serious: Yes (Other)
  Sender: FDA-Public Use
  Company Number: US-PFIZER INC-2013282209

PATIENT
  Age: 65 Year
  Sex: Female
  Weight: 97.1 kg

DRUGS (3)
  1. AROMASIN [Suspect]
     Indication: BREAST CANCER
     Dosage: 25 MG, 1X/DAY
     Dates: start: 2012
  2. GLIBURIDE/METFORMIN HYDROCHLORIDE [Concomitant]
     Indication: DIABETES MELLITUS
     Dosage: (GLIBURIDE 5MG/ METFORMIN HYDROCHLORIDE 500MG), 2X/DAY
  3. METFORMIN [Concomitant]
     Indication: DIABETES MELLITUS
     Dosage: 500 MG, 1X/DAY

REACTIONS (3)
  - Diabetes mellitus [Unknown]
  - Hot flush [Unknown]
  - Weight increased [Unknown]
